FAERS Safety Report 4611422-8 (Version None)
Quarter: 2005Q1

REPORT INFORMATION
  Report Type: 
  Country: None (occurrence: None)
  Receive Date: 20050315
  Receipt Date: 20050315
  Transmission Date: 20050727
  Serious: Yes (Hospitalization)
  Sender: FDA-Public Use
  Company Number: None

PATIENT
  Age: 77 Year
  Sex: Male
  Weight: 60.782 kg

DRUGS (1)
  1. WARFARIN     2 MG     DUPONT [Suspect]
     Indication: ATRIAL FIBRILLATION
     Dosage: 2 MG    QD   ORAL
     Route: 048
     Dates: start: 20050102, end: 20050110

REACTIONS (3)
  - HAEMORRHAGIC DISORDER [None]
  - PROTHROMBIN TIME PROLONGED [None]
  - THERAPEUTIC RESPONSE INCREASED [None]
